FAERS Safety Report 9157313 (Version 2)
Quarter: 2013Q1

REPORT INFORMATION
  Report Type: Spontaneous
  Country: JP (occurrence: JP)
  Receive Date: 20130312
  Receipt Date: 20130327
  Transmission Date: 20140127
  Serious: No
  Sender: FDA-Public Use
  Company Number: JP-JNJFOC-20130301513

PATIENT
  Age: 6 Decade
  Sex: Female

DRUGS (1)
  1. ONEDURO [Suspect]
     Indication: CANCER PAIN
     Route: 062

REACTIONS (1)
  - Incorrect drug administration duration [Unknown]
